FAERS Safety Report 4460105-6 (Version None)
Quarter: 2004Q3

REPORT INFORMATION
  Report Type: 
  Country: None (occurrence: None)
  Receive Date: 20040928
  Receipt Date: 20031209
  Transmission Date: 20050211
  Serious: No
  Sender: FDA-Public Use
  Company Number: US-GLAXOSMITHKLINE-A0442510A

PATIENT
  Age: 80 Year
  Sex: Female

DRUGS (15)
  1. SEREVENT [Suspect]
     Indication: ASTHMA
     Dosage: 1PUFF TWICE PER DAY
     Route: 055
  2. PLAVIX [Concomitant]
  3. ATENOLOL [Concomitant]
  4. NORVASC [Concomitant]
  5. VOLTAREN [Concomitant]
  6. PREVACID [Concomitant]
  7. HYDROCODONE BITARTRATE AND ACETAMINOPHEN [Concomitant]
  8. MIACALCIN [Concomitant]
  9. FOSAMAX [Concomitant]
  10. CITRICAL+D [Concomitant]
  11. MARPLAN [Concomitant]
  12. SERENTIL [Concomitant]
  13. DIPENTUM [Concomitant]
  14. AZATHIOPRINE [Concomitant]
  15. MULTIVITAMIN [Concomitant]

REACTIONS (2)
  - MALAISE [None]
  - STOMATITIS [None]
